FAERS Safety Report 17883358 (Version 1)
Quarter: 2020Q2

REPORT INFORMATION
  Report Type: Report from Study
  Country: ES (occurrence: ES)
  Receive Date: 20200611
  Receipt Date: 20200611
  Transmission Date: 20200714
  Serious: Yes (Life-Threatening, Hospitalization)
  Sender: FDA-Public Use
  Company Number: ES-TEVA-2020-ES-1245825

PATIENT
  Age: 58 Year
  Sex: Male

DRUGS (6)
  1. ARCOXIA [Interacting]
     Active Substance: ETORICOXIB
     Dosage: 60 MG
     Route: 048
     Dates: start: 20151130, end: 20170316
  2. METFORMINA (1359A) [Concomitant]
     Active Substance: METFORMIN HYDROCHLORIDE
     Indication: DIABETES MELLITUS
     Dosage: 850 MG
     Route: 048
     Dates: start: 201409, end: 20170316
  3. PSICOTRIC 100 MG COMPRIMIDOS RECUBIERTOS CON PELICULA EFG , 60 COMPRIM [Concomitant]
     Dosage: 100 MG
     Route: 048
     Dates: start: 201502, end: 20170316
  4. MIRTAZAPINA (2704A) [Suspect]
     Active Substance: MIRTAZAPINE
     Dosage: 30 MG
     Route: 048
     Dates: start: 201509, end: 20170316
  5. CYMBALTA [Interacting]
     Active Substance: DULOXETINE HYDROCHLORIDE
     Dosage: 120 MG
     Route: 048
     Dates: start: 20170126, end: 20170316
  6. ENALAPRIL MALEATO (2142MA) [Concomitant]
     Active Substance: ENALAPRIL MALEATE
     Indication: HYPERTENSION
     Dosage: 20 MG
     Route: 048
     Dates: start: 201602, end: 20170316

REACTIONS (2)
  - Upper gastrointestinal haemorrhage [Recovered/Resolved]
  - Drug interaction [Unknown]

NARRATIVE: CASE EVENT DATE: 20170316
